FAERS Safety Report 4798938-9 (Version None)
Quarter: 2005Q4

REPORT INFORMATION
  Report Type: 
  Country: None (occurrence: None)
  Receive Date: 20051014
  Receipt Date: 20040630
  Transmission Date: 20060501
  Serious: Yes (Hospitalization)
  Sender: FDA-Public Use
  Company Number: ES-AMGEN-US082698

PATIENT
  Sex: Female

DRUGS (2)
  1. ENBREL [Interacting]
     Indication: RHEUMATOID ARTHRITIS
     Route: 058
     Dates: start: 20030720, end: 20040502
  2. ARAVA [Suspect]
     Dates: start: 20040310, end: 20040527

REACTIONS (11)
  - ASTHENIA [None]
  - DRUG INEFFECTIVE [None]
  - DRUG INTERACTION [None]
  - DRY THROAT [None]
  - DYSPHAGIA [None]
  - OESOPHAGEAL CANDIDIASIS [None]
  - PRURITUS [None]
  - PRURITUS GENERALISED [None]
  - PYREXIA [None]
  - UPPER RESPIRATORY TRACT INFECTION [None]
  - WEIGHT DECREASED [None]
